FAERS Safety Report 5419789-8 (Version None)
Quarter: 2007Q3

REPORT INFORMATION
  Report Type: 
  Country: None (occurrence: None)
  Receive Date: 20070820
  Receipt Date: 20070813
  Transmission Date: 20080115
  Serious: Yes (Life-Threatening)
  Sender: FDA-Public Use
  Company Number: SE-ASTRAZENECA-2007SE04412

PATIENT
  Age: 22160 Day
  Sex: Female

DRUGS (6)
  1. SEROQUEL [Suspect]
     Indication: BIPOLAR I DISORDER
     Route: 048
     Dates: end: 20070527
  2. ZYPREXA [Suspect]
     Indication: BIPOLAR I DISORDER
     Route: 048
     Dates: start: 20061101, end: 20070527
  3. CYMBALTA [Concomitant]
     Route: 048
  4. OXASCAND [Concomitant]
     Route: 048
  5. MIANSERIN [Concomitant]
     Route: 048
  6. ZOPIKLON MERCK [Concomitant]
     Route: 048

REACTIONS (3)
  - ELECTROCARDIOGRAM QT PROLONGED [None]
  - NEUROLEPTIC MALIGNANT SYNDROME [None]
  - OVERDOSE [None]
